FAERS Safety Report 19768217 (Version 1)
Quarter: 2021Q3

REPORT INFORMATION
  Report Type: Spontaneous
  Country: US (occurrence: US)
  Receive Date: 20210831
  Receipt Date: 20210831
  Transmission Date: 20211014
  Serious: No
  Sender: FDA-Public Use
  Company Number: US-ORGANON-O2108USA002082

PATIENT
  Age: 54 Year
  Sex: Male

DRUGS (1)
  1. DULERA [Suspect]
     Active Substance: FORMOTEROL FUMARATE DIHYDRATE\MOMETASONE FUROATE
     Dosage: 2 PUFFS EVERY MORNING
     Dates: start: 20210810, end: 20210821

REACTIONS (5)
  - Product dose omission issue [Unknown]
  - Poor quality device used [Unknown]
  - Wrong technique in device usage process [Unknown]
  - Device malfunction [Unknown]
  - No adverse event [Unknown]

NARRATIVE: CASE EVENT DATE: 202108
